FAERS Safety Report 6747803-6 (Version None)
Quarter: 2010Q2

REPORT INFORMATION
  Report Type: 
  Country: None (occurrence: None)
  Receive Date: 20100528
  Receipt Date: 20100517
  Transmission Date: 20101027
  Serious: Yes (Other)
  Sender: FDA-Public Use
  Company Number: AL-PFIZER INC-2010061972

PATIENT
  Age: 8 Year
  Sex: Female

DRUGS (4)
  1. DOXORUBICIN HCL [Suspect]
     Indication: NON-HODGKIN'S LYMPHOMA
  2. PREDNISOLONE [Suspect]
     Indication: NON-HODGKIN'S LYMPHOMA
     Route: 048
  3. CYCLOPHOSPHAMIDE [Suspect]
     Indication: NON-HODGKIN'S LYMPHOMA
  4. ONCOVIN [Suspect]
     Indication: NON-HODGKIN'S LYMPHOMA

REACTIONS (5)
  - ARTHROPATHY [None]
  - JOINT ANKYLOSIS [None]
  - JOINT CONTRACTURE [None]
  - MUSCLE ATROPHY [None]
  - MYALGIA [None]
